FAERS Safety Report 8200032-1 (Version None)
Quarter: 2012Q1

REPORT INFORMATION
  Report Type: 
  Country: None (occurrence: None)
  Receive Date: 20120312
  Receipt Date: 20120308
  Transmission Date: 20120608
  Serious: Yes (Other)
  Sender: FDA-Public Use
  Company Number: US-PFIZER INC-2012063390

PATIENT
  Sex: Male
  Weight: 87.528 kg

DRUGS (6)
  1. AGGRENOX [Concomitant]
     Indication: CEREBROVASCULAR ACCIDENT
     Dosage: UNK, 2X/DAY
     Dates: start: 20050101
  2. IBUPROFEN [Concomitant]
     Indication: ARTHRALGIA
     Dosage: 800 MG, AS NEEDED
     Dates: start: 20050101, end: 20070101
  3. AMLODIPINE [Concomitant]
     Indication: HYPERTENSION
     Dosage: 5 MG,DAILY
     Dates: start: 20050101
  4. LIPITOR [Suspect]
     Indication: BLOOD CHOLESTEROL INCREASED
     Dosage: 40 MG,DAILY
     Dates: start: 20051101
  5. LISINOPRIL [Concomitant]
     Indication: HYPERTENSION
     Dosage: 10 MG, DAILY
     Dates: start: 20050101
  6. METOPROLOL [Concomitant]
     Indication: CARDIAC DISORDER
     Dosage: UNK, 2X\DAY
     Dates: start: 20050101

REACTIONS (1)
  - DIABETES MELLITUS [None]
